FAERS Safety Report 19129450 (Version 2)
Quarter: 2021Q2

REPORT INFORMATION
  Report Type: Report from Study
  Country: US (occurrence: US)
  Receive Date: 20210413
  Receipt Date: 20210507
  Transmission Date: 20210717
  Serious: Yes (Death, Hospitalization)
  Sender: FDA-Public Use
  Company Number: US-ROCHE-2762839

PATIENT
  Age: 74 Year
  Sex: Male

DRUGS (17)
  1. ACYCLOVIR. [Concomitant]
     Active Substance: ACYCLOVIR
  2. FINASTERIDE. [Concomitant]
     Active Substance: FINASTERIDE
  3. IBRUTINIB [Suspect]
     Active Substance: IBRUTINIB
     Indication: DIFFUSE LARGE B-CELL LYMPHOMA
     Dosage: LAST DOSE OF IBRUTINIB PRIOR TO SAE: 28/JAN/2021?DAYS 1?14, AT A DOSE OF 560 MG; EVERY 21 DAYS FOR U
     Route: 048
     Dates: start: 20210122, end: 20210128
  4. MELATONIN [Concomitant]
     Active Substance: MELATONIN
  5. VENETOCLAX. [Suspect]
     Active Substance: VENETOCLAX
     Indication: DIFFUSE LARGE B-CELL LYMPHOMA
     Dosage: 800 MG DAYS 2?14, EVERY 3 WEEKS?ON 23/JAN/2021, 400 MG VENETOCLAX PO ON DAYS 2?14 Q3W.CYCLE 1, DAY 1
     Route: 048
     Dates: start: 20210122, end: 20210128
  6. OBINUTUZUMAB. [Suspect]
     Active Substance: OBINUTUZUMAB
     Indication: DIFFUSE LARGE B-CELL LYMPHOMA
     Dosage: LAST DOSE OF OBINUTUZUMAB PRIOR TO SAE: 23/JAN/2021?DAYS 1 AND 2, AT A DOSE OF 1000 MG; EVERY 21 DAY
     Route: 042
     Dates: start: 20210122, end: 20210128
  7. LENALIDOMIDE [Suspect]
     Active Substance: LENALIDOMIDE
     Indication: DIFFUSE LARGE B-CELL LYMPHOMA
     Dosage: LAST DOSE OF LENALIDOMIDE PRIOR TO SAE: 28/JAN/2021?DAYS 1?15, AT A DOSE OF 15 MG; EVERY 21 DAYS FOR
     Route: 048
     Dates: start: 20210122, end: 20210128
  8. INSULIN GLARGINE [Concomitant]
     Active Substance: INSULIN GLARGINE
  9. PREDNISONE. [Suspect]
     Active Substance: PREDNISONE
     Indication: DIFFUSE LARGE B-CELL LYMPHOMA
     Dosage: LAST DOSE OF PREDNISONE PRIOR TO SAE: 28/JAN/2021?DAYS 1?7, AT A DOSE OF 100MG; EVERY 21 DAYS FOR UP
     Route: 048
     Dates: start: 20210122, end: 20210128
  10. LOSARTAN POTASSIUM. [Concomitant]
     Active Substance: LOSARTAN POTASSIUM
  11. SIMVASTATIN. [Concomitant]
     Active Substance: SIMVASTATIN
  12. SODIUM CHLORIDE. [Concomitant]
     Active Substance: SODIUM CHLORIDE
  13. SULFAMETHOXAZOLE;TRIMETHOPRIM [Concomitant]
     Active Substance: SULFAMETHOXAZOLE\TRIMETHOPRIM
  14. METFORMIN [Concomitant]
     Active Substance: METFORMIN HYDROCHLORIDE
  15. PANTOPRAZOLE [Concomitant]
     Active Substance: PANTOPRAZOLE
  16. ONDANSETRON [Concomitant]
     Active Substance: ONDANSETRON
  17. OXYCODONE [Concomitant]
     Active Substance: OXYCODONE

REACTIONS (2)
  - Hypernatraemia [Recovered/Resolved]
  - Disease progression [Fatal]

NARRATIVE: CASE EVENT DATE: 20210202
